FAERS Safety Report 14190979 (Version 1)
Quarter: 2017Q4

REPORT INFORMATION
  Report Type: Spontaneous
  Country: US (occurrence: US)
  Receive Date: 20171115
  Receipt Date: 20171115
  Transmission Date: 20180321
  Serious: Yes (Other)
  Sender: FDA-Public Use
  Company Number: US-GLAXOSMITHKLINE-US2017GSK174666

PATIENT
  Sex: Female

DRUGS (1)
  1. BREO ELLIPTA [Suspect]
     Active Substance: FLUTICASONE FUROATE\VILANTEROL TRIFENATATE
     Indication: PULMONARY FIBROSIS

REACTIONS (5)
  - Anxiety [Unknown]
  - Blood cholesterol increased [Unknown]
  - Hypertension [Unknown]
  - Product use in unapproved indication [Unknown]
  - Oxygen therapy [Unknown]
